FAERS Safety Report 17049955 (Version 1)
Quarter: 2019Q4

REPORT INFORMATION
  Report Type: Spontaneous
  Country: US (occurrence: US)
  Receive Date: 20191119
  Receipt Date: 20191119
  Transmission Date: 20200122
  Serious: Yes (Other)
  Sender: FDA-Public Use
  Company Number: US-SHIRE-US201938734

PATIENT
  Age: 62 Year
  Sex: Female

DRUGS (2)
  1. ICATIBANT [Suspect]
     Active Substance: ICATIBANT ACETATE
     Indication: ANGIOEDEMA
     Dosage: UNK
     Route: 065
     Dates: start: 201606
  2. C1 INHIBITOR (HUMAN) [Suspect]
     Active Substance: HUMAN C1-ESTERASE INHIBITOR
     Indication: ANGIOEDEMA
     Route: 065

REACTIONS (2)
  - Intentional product use issue [Unknown]
  - Angioedema [Recovered/Resolved]
